FAERS Safety Report 13513786 (Version 1)
Quarter: 2017Q2

REPORT INFORMATION
  Report Type: Spontaneous
  Country: GB (occurrence: GB)
  Receive Date: 20170504
  Receipt Date: 20170504
  Transmission Date: 20170830
  Serious: Yes (Hospitalization, Other)
  Sender: FDA-Public Use
  Company Number: GB-DEXPHARM-20170622

PATIENT
  Age: 68 Year
  Sex: Female

DRUGS (14)
  1. ADCAL [Suspect]
     Active Substance: CALCIUM CARBONATE
  2. ATORVASTATIN [Suspect]
     Active Substance: ATORVASTATIN
  3. CITALOPRAM [Suspect]
     Active Substance: CITALOPRAM HYDROBROMIDE
  4. OMEPRAZOLE. [Suspect]
     Active Substance: OMEPRAZOLE
  5. EMLA [Suspect]
     Active Substance: LIDOCAINE\PRILOCAINE
  6. EZETROL [Suspect]
     Active Substance: EZETIMIBE
     Route: 048
  7. DOCUSATE SODIUM. [Suspect]
     Active Substance: DOCUSATE SODIUM
  8. ASPIRIN. [Suspect]
     Active Substance: ASPIRIN
     Route: 048
  9. ALLOPURINOL. [Suspect]
     Active Substance: ALLOPURINOL
  10. AMLODIPINE [Suspect]
     Active Substance: AMLODIPINE BESYLATE
  11. FUROSEMIDE. [Suspect]
     Active Substance: FUROSEMIDE
     Route: 048
  12. REPLAGAL [Suspect]
     Active Substance: AGALSIDASE ALFA
  13. LANTHANUM CARBONATE. [Suspect]
     Active Substance: LANTHANUM CARBONATE
  14. LORATADINE. [Suspect]
     Active Substance: LORATADINE
     Route: 048

REACTIONS (1)
  - Peritonitis [Recovering/Resolving]
